FAERS Safety Report 11983482 (Version 1)
Quarter: 2016Q1

REPORT INFORMATION
  Report Type: Spontaneous
  Country: FR (occurrence: FR)
  Receive Date: 20160201
  Receipt Date: 20160201
  Transmission Date: 20160526
  Serious: Yes (Life-Threatening, Hospitalization, Other)
  Sender: FDA-Public Use
  Company Number: FR-ELI_LILLY_AND_COMPANY-FR201601009237

PATIENT
  Age: 0 Day

DRUGS (21)
  1. CEFOTAXIME [Suspect]
     Active Substance: CEFOTAXIME SODIUM
     Dosage: 64 MG, BID
     Route: 042
     Dates: start: 20150916, end: 20150916
  2. CAFEINE [Suspect]
     Active Substance: CAFFEINE
     Indication: APNOEA
     Dosage: UNK, UNKNOWN
     Route: 042
  3. VALDOXAN [Suspect]
     Active Substance: AGOMELATINE
     Indication: BIPOLAR DISORDER
     Dosage: UNK, UNKNOWN
     Route: 064
  4. SUFENTANIL [Suspect]
     Active Substance: SUFENTANIL
     Indication: CAESAREAN SECTION
     Dosage: UNK, UNKNOWN
     Route: 064
  5. ZYPREXA [Suspect]
     Active Substance: OLANZAPINE
     Indication: BIPOLAR DISORDER
     Dosage: 10 MG, QD
     Route: 064
  6. CLAMOXYL                           /00249601/ [Suspect]
     Active Substance: AMOXICILLIN
     Dosage: 66 MG, BID
     Route: 042
     Dates: start: 20150917, end: 20150919
  7. CUROSURF [Suspect]
     Active Substance: PORACTANT ALFA
     Indication: NEONATAL RESPIRATORY DISTRESS SYNDROME
     Dosage: 240 MG, SINGLE
     Route: 039
     Dates: start: 20150916, end: 20150916
  8. XYLOCAINE [Suspect]
     Active Substance: LIDOCAINE HYDROCHLORIDE
     Indication: CAESAREAN SECTION
     Dosage: UNK, UNKNOWN
     Route: 064
  9. ROPIVACAINE [Suspect]
     Active Substance: ROPIVACAINE
     Indication: CAESAREAN SECTION
     Dosage: UNK, UNKNOWN
     Route: 064
  10. AMIKACINE                          /00391001/ [Suspect]
     Active Substance: AMIKACIN
     Dosage: 23.8 MG, SINGLE
     Route: 042
     Dates: start: 20150919, end: 20150919
  11. LASILIX                            /00032601/ [Suspect]
     Active Substance: FUROSEMIDE
     Indication: PRODUCT USED FOR UNKNOWN INDICATION
     Dosage: 0.66 MG, BID
     Route: 042
     Dates: start: 20150917, end: 20150918
  12. CELESTENE CHRONODOSE [Suspect]
     Active Substance: BETAMETHASONE
     Indication: PRODUCT USED FOR UNKNOWN INDICATION
     Dosage: 12 MG, UNKNOWN
     Route: 064
  13. AMIKACINE                          /00391001/ [Suspect]
     Active Substance: AMIKACIN
     Indication: PRODUCT USED FOR UNKNOWN INDICATION
     Dosage: 23.8 MG, SINGLE
     Route: 042
     Dates: start: 20150916, end: 20150916
  14. XEROQUEL [Suspect]
     Active Substance: QUETIAPINE FUMARATE
     Indication: BIPOLAR DISORDER
     Dosage: UNK, UNKNOWN
     Route: 064
  15. CLAMOXYL                           /00249601/ [Suspect]
     Active Substance: AMOXICILLIN
     Indication: PRODUCT USED FOR UNKNOWN INDICATION
     Dosage: UNK, UNKNOWN
     Route: 064
  16. TERALITHE [Suspect]
     Active Substance: LITHIUM CARBONATE
     Indication: BIPOLAR DISORDER
     Dosage: UNK, UNKNOWN
     Route: 064
  17. CEFOTAXIME [Suspect]
     Active Substance: CEFOTAXIME SODIUM
     Indication: PRODUCT USED FOR UNKNOWN INDICATION
     Dosage: UNK, UNKNOWN
     Route: 064
  18. PARACETAMOL [Suspect]
     Active Substance: ACETAMINOPHEN
     Indication: PRODUCT USED FOR UNKNOWN INDICATION
     Dosage: UNK, UNKNOWN
     Route: 042
  19. METRONIDAZOLE. [Suspect]
     Active Substance: METRONIDAZOLE
     Indication: PRODUCT USED FOR UNKNOWN INDICATION
     Dosage: UNK, UNKNOWN
     Route: 064
  20. CUROSURF [Suspect]
     Active Substance: PORACTANT ALFA
     Dosage: 120 MG, UNKNOWN
     Route: 039
     Dates: start: 20150918, end: 20150918
  21. MORPHINE CHLORHYDRATE AGUETTANT [Suspect]
     Active Substance: MORPHINE HYDROCHLORIDE
     Indication: PRODUCT USED FOR UNKNOWN INDICATION
     Dosage: UNK, UNKNOWN
     Route: 042
     Dates: start: 20150916, end: 20150918

REACTIONS (7)
  - Neonatal respiratory distress syndrome [Unknown]
  - Foetal exposure during pregnancy [Unknown]
  - Apgar score low [Unknown]
  - Vertical infection transmission [Unknown]
  - Neonatal intestinal perforation [Recovered/Resolved with Sequelae]
  - Premature baby [Unknown]
  - Apnoea [Unknown]

NARRATIVE: CASE EVENT DATE: 20150916
